FAERS Safety Report 9169893 (Version 1)
Quarter: 2013Q1

REPORT INFORMATION
  Report Type: Spontaneous
  Country: GB (occurrence: None)
  Receive Date: 20130307
  Receipt Date: 20130307
  Transmission Date: 20140127
  Serious: Yes (Disabling)
  Sender: FDA-Public Use
  Company Number: GD-DEXPHARM-20130061

PATIENT
  Age: 75 Year
  Sex: Male

DRUGS (6)
  1. OMEPRAZOLE [Suspect]
     Dates: end: 20130114
  2. AMLODIPINE [Concomitant]
  3. FINASTERIDE [Concomitant]
  4. HYDROCORTISONE [Concomitant]
  5. MOMETASONE [Concomitant]
  6. TAMSULOSIN HCL [Concomitant]

REACTIONS (1)
  - Diarrhoea [None]
